FAERS Safety Report 8381262-5 (Version None)
Quarter: 2012Q2

REPORT INFORMATION
  Report Type: 
  Country: None (occurrence: None)
  Receive Date: 20120504
  Receipt Date: 20120423
  Transmission Date: 20120825
  Serious: Yes (Other)
  Sender: FDA-Public Use
  Company Number: 2012032151

PATIENT
  Sex: Female

DRUGS (1)
  1. RHOPHYLAC [Suspect]

REACTIONS (6)
  - DELIRIUM [None]
  - SOMNOLENCE [None]
  - PYREXIA [None]
  - HYPERSENSITIVITY [None]
  - UNRESPONSIVE TO STIMULI [None]
  - MATERNAL EXPOSURE DURING PREGNANCY [None]
